FAERS Safety Report 14206596 (Version 1)
Quarter: 2017Q4

REPORT INFORMATION
  Report Type: Spontaneous
  Country: FR (occurrence: FR)
  Receive Date: 20171120
  Receipt Date: 20171120
  Transmission Date: 20180321
  Serious: Yes (Other)
  Sender: FDA-Public Use
  Company Number: FR-MERCK KGAA-2034694

PATIENT
  Age: 69 Year
  Sex: Female

DRUGS (2)
  1. NOVOTHYROX [Suspect]
     Active Substance: LEVOTHYROXINE SODIUM
     Indication: PRODUCT USED FOR UNKNOWN INDICATION
     Dates: start: 201705, end: 20171015
  2. EUTIROX [Suspect]
     Active Substance: LEVOTHYROXINE SODIUM
     Dates: start: 20171015

REACTIONS (9)
  - Insomnia [None]
  - Oral discomfort [None]
  - Blood thyroid stimulating hormone increased [None]
  - Suicidal ideation [None]
  - Dizziness [None]
  - Speech disorder [None]
  - Oral fungal infection [Not Recovered/Not Resolved]
  - Haemophilus infection [Not Recovered/Not Resolved]
  - Head titubation [None]

NARRATIVE: CASE EVENT DATE: 2017
